FAERS Safety Report 5956153-7 (Version None)
Quarter: 2008Q4

REPORT INFORMATION
  Report Type: 
  Country: None (occurrence: None)
  Receive Date: 20081118
  Receipt Date: 20081110
  Transmission Date: 20090506
  Serious: Yes (Disabling)
  Sender: FDA-Public Use
  Company Number: CH-BAYER-200828366GPV

PATIENT
  Age: 21 Year
  Sex: Female
  Weight: 62 kg

DRUGS (3)
  1. MIRENA [Suspect]
     Indication: HEREDITARY ANGIOEDEMA
     Route: 015
     Dates: start: 20060717
  2. CYKLOKAPRON [Concomitant]
     Indication: HEREDITARY ANGIOEDEMA
  3. BERINERT B [Concomitant]
     Indication: HEREDITARY ANGIOEDEMA

REACTIONS (1)
  - FIBROADENOMA OF BREAST [None]
